FAERS Safety Report 7108418-3 (Version None)
Quarter: 2010Q4

REPORT INFORMATION
  Report Type: 
  Country: None (occurrence: None)
  Receive Date: 20101117
  Receipt Date: 20101108
  Transmission Date: 20110411
  Serious: Yes (Death, Hospitalization)
  Sender: FDA-Public Use
  Company Number: A0892715A

PATIENT
  Age: 46 Year
  Sex: Female

DRUGS (1)
  1. AVANDIA [Suspect]
     Dates: start: 19990101, end: 20090101

REACTIONS (2)
  - CARDIAC FAILURE [None]
  - DEATH [None]
